FAERS Safety Report 5520182-8 (Version None)
Quarter: 2007Q4

REPORT INFORMATION
  Report Type: 
  Country: None (occurrence: None)
  Receive Date: 20071116
  Receipt Date: 20071109
  Transmission Date: 20080405
  Serious: Yes (Death)
  Sender: FDA-Public Use
  Company Number: IT-GENENTECH-251415

PATIENT
  Sex: Female

DRUGS (2)
  1. RITUXAN [Suspect]
     Indication: GASTRIC CANCER
     Dosage: 375 MG/M2, 1/WEEK
     Dates: start: 20030901, end: 20031107
  2. CORTICOSTEROIDS (UNK INGREDIENTS) [Concomitant]
     Indication: RENAL TRANSPLANT
     Dates: start: 19850601

REACTIONS (2)
  - PNEUMONIA BACTERIAL [None]
  - RESPIRATORY FAILURE [None]
